FAERS Safety Report 9661663 (Version 1)
Quarter: 2013Q4

REPORT INFORMATION
  Report Type: Spontaneous
  Country: US (occurrence: None)
  Receive Date: 20131030
  Receipt Date: 20131030
  Transmission Date: 20140711
  Serious: Yes (Hospitalization)
  Sender: FDA-Public Use
  Company Number: AUR-APL-2013-08890

PATIENT
  Age: 7 Year
  Sex: Male

DRUGS (2)
  1. AMPICILLIN [Suspect]
     Indication: RESPIRATORY TRACT INFECTION
  2. CEFTRIAXONE (CEFTRIAXONE) [Suspect]
     Indication: PRODUCT USED FOR UNKNOWN INDICATION

REACTIONS (3)
  - Rhinitis [None]
  - Conjunctival hyperaemia [None]
  - Drug hypersensitivity [None]
